FAERS Safety Report 5814270-6 (Version None)
Quarter: 2008Q3

REPORT INFORMATION
  Report Type: 
  Country: None (occurrence: None)
  Receive Date: 20080715
  Receipt Date: 20080702
  Transmission Date: 20090109
  Serious: Yes (Death)
  Sender: FDA-Public Use
  Company Number: US024043

PATIENT
  Sex: Female

DRUGS (3)
  1. ACTIQ [Suspect]
     Indication: PAIN
     Dosage: UP TO SIX TIMES PER DAY QD ORAL
     Route: 048
     Dates: start: 20080201, end: 20080301
  2. FENTANYL [Concomitant]
  3. MORPHINE [Concomitant]

REACTIONS (1)
  - DEATH [None]
